FAERS Safety Report 4863569-9 (Version None)
Quarter: 2005Q4

REPORT INFORMATION
  Report Type: 
  Country: None (occurrence: None)
  Receive Date: 20051222
  Receipt Date: 20050428
  Transmission Date: 20060501
  Serious: No
  Sender: FDA-Public Use
  Company Number: US-GLAXOSMITHKLINE-A0556469A

PATIENT
  Age: 77 Year
  Sex: Male

DRUGS (4)
  1. FLONASE [Suspect]
     Indication: POSTNASAL DRIP
     Route: 045
  2. ZOCOR [Concomitant]
  3. HYTRIN [Concomitant]
  4. UNKNOWN MEDICATION [Concomitant]

REACTIONS (1)
  - DRUG INEFFECTIVE [None]
